FAERS Safety Report 18883050 (Version 3)
Quarter: 2022Q2

REPORT INFORMATION
  Report Type: Spontaneous
  Country: US (occurrence: None)
  Receive Date: 20210211
  Receipt Date: 20220421
  Transmission Date: 20220721
  Serious: Yes (Other)
  Sender: FDA-Public Use
  Company Number: 2021A027508

PATIENT
  Age: 26 Year
  Sex: Female
  Weight: 89.4 kg

DRUGS (5)
  1. NEXIUM 24HR [Suspect]
     Active Substance: ESOMEPRAZOLE MAGNESIUM
     Indication: Gastrooesophageal reflux disease
     Route: 048
     Dates: start: 2017, end: 2019
  2. CLINDAGEL [Concomitant]
     Active Substance: CLINDAMYCIN PHOSPHATE
  3. VIBRAMYCIN [Concomitant]
     Active Substance: DOXYCYCLINE
  4. NAPROXEN [Concomitant]
     Active Substance: NAPROXEN
  5. FLEXERIL [Concomitant]
     Active Substance: CYCLOBENZAPRINE HYDROCHLORIDE

REACTIONS (1)
  - Chronic kidney disease [Not Recovered/Not Resolved]

NARRATIVE: CASE EVENT DATE: 20190101
